FAERS Safety Report 4585854-0 (Version None)
Quarter: 2005Q1

REPORT INFORMATION
  Report Type: 
  Country: None (occurrence: None)
  Receive Date: 20050217
  Receipt Date: 20050208
  Transmission Date: 20050727
  Serious: Yes (Death)
  Sender: FDA-Public Use
  Company Number: US-GLAXOSMITHKLINE-A0544663A

PATIENT
  Age: 40 Year
  Sex: Female

DRUGS (4)
  1. ADVAIR DISKUS 100/50 [Suspect]
     Indication: ASTHMA
     Route: 055
     Dates: start: 20040101
  2. UNSPECIFIED THYROID MEDICATION [Concomitant]
  3. UNSPECIFIED INHALER [Concomitant]
  4. NEBULIZER TREATMENT [Concomitant]

REACTIONS (2)
  - ASTHMA [None]
  - DEATH [None]
